FAERS Safety Report 5976661-2 (Version None)
Quarter: 2008Q4

REPORT INFORMATION
  Report Type: 
  Country: None (occurrence: None)
  Receive Date: 20081203
  Receipt Date: 20081126
  Transmission Date: 20090506
  Serious: Yes (Other)
  Sender: FDA-Public Use
  Company Number: TR-JNJFOC-20081200513

PATIENT
  Sex: Male

DRUGS (4)
  1. DURAGESIC-100 [Suspect]
  2. DURAGESIC-100 [Suspect]
  3. DURAGESIC-100 [Suspect]
     Indication: PAIN
     Dosage: 100 MCG/H WAS STOPPED, TREATMENT CONTINUED WITH 50 MCG/H
  4. MORPHINE [Concomitant]
     Indication: PAIN
     Route: 051

REACTIONS (5)
  - ACCIDENTAL OVERDOSE [None]
  - DRUG DOSE OMISSION [None]
  - PAIN [None]
  - RESPIRATORY DEPRESSION [None]
  - SOMNOLENCE [None]
